FAERS Safety Report 18955933 (Version 2)
Quarter: 2021Q1

REPORT INFORMATION
  Report Type: Spontaneous
  Country: ES (occurrence: ES)
  Receive Date: 20210302
  Receipt Date: 20210311
  Transmission Date: 20210420
  Serious: Yes (Other)
  Sender: FDA-Public Use
  Company Number: ES-SA-2021SA030996

PATIENT
  Sex: Female

DRUGS (1)
  1. DUPIXENT [Suspect]
     Active Substance: DUPILUMAB
     Indication: DERMATITIS ATOPIC
     Dosage: UNK
     Dates: start: 202010

REACTIONS (4)
  - Autoimmune hypothyroidism [Unknown]
  - Pollakiuria [Recovering/Resolving]
  - Nocturia [Unknown]
  - Anti-thyroid antibody positive [Unknown]
